FAERS Safety Report 4390128-7 (Version None)
Quarter: 2004Q2

REPORT INFORMATION
  Report Type: 
  Country: None (occurrence: None)
  Receive Date: 20040630
  Receipt Date: 20040614
  Transmission Date: 20050107
  Serious: No
  Sender: FDA-Public Use
  Company Number: B0335539A

PATIENT
  Age: 40 Year
  Sex: Male

DRUGS (1)
  1. BECLOMETHASONE DIPROPIONATE (BECLOMETHASONE DIPROPION. ) [Suspect]
     Indication: PSORIASIS
     Dosage: TOPICAL
     Route: 061

REACTIONS (3)
  - CATARACT SUBCAPSULAR [None]
  - INTRAOCULAR PRESSURE INCREASED [None]
  - VISUAL FIELD DEFECT [None]
